FAERS Safety Report 18044567 (Version 1)
Quarter: 2020Q3

REPORT INFORMATION
  Report Type: Spontaneous
  Country: US (occurrence: US)
  Receive Date: 20200720
  Receipt Date: 20200720
  Transmission Date: 20201103
  Serious: Yes (Other)
  Sender: FDA-Public Use
  Company Number: None

PATIENT
  Age: 71 Year
  Sex: Male
  Weight: 88.65 kg

DRUGS (4)
  1. CARTIA XT [Suspect]
     Active Substance: DILTIAZEM HYDROCHLORIDE
     Indication: HYPERTENSION
     Dosage: ?          QUANTITY:1 CAPSULE(S);?
     Route: 048
  2. B?COMPLEX SUPPLEMENT [Concomitant]
  3. EYE MEDICATION FOR GLAUCOMA [Concomitant]
  4. LUTEN FOR EYE HEALTH [Concomitant]

REACTIONS (4)
  - Oedema peripheral [None]
  - Abnormal dreams [None]
  - Limb discomfort [None]
  - Flushing [None]
